FAERS Safety Report 6351409-0 (Version None)
Quarter: 2009Q3

REPORT INFORMATION
  Report Type: 
  Country: None (occurrence: None)
  Receive Date: 20090912
  Receipt Date: 20090622
  Transmission Date: 20100115
  Serious: No
  Sender: FDA-Public Use
  Company Number: US-ABBOTT-07P-163-0416102-00

PATIENT
  Sex: Female
  Weight: 114 kg

DRUGS (7)
  1. HUMIRA [Suspect]
     Indication: CROHN'S DISEASE
     Route: 058
     Dates: start: 20070819, end: 20070902
  2. HUMIRA [Suspect]
     Dosage: CONSUMER DUE TO TAKE 40 MG Q
     Route: 058
     Dates: start: 20070902
  3. MESALAZINE [Concomitant]
     Indication: CROHN'S DISEASE
     Route: 048
  4. PREDNISONE [Concomitant]
     Indication: CROHN'S DISEASE
     Route: 048
  5. MONTELUKAST [Concomitant]
     Indication: HYPERSENSITIVITY
     Route: 048
  6. LOTREL [Concomitant]
     Indication: BLOOD PRESSURE
     Route: 048
  7. ATENOLOL [Concomitant]
     Indication: BLOOD PRESSURE
     Route: 048

REACTIONS (2)
  - DRUG DELIVERY SYSTEM MALFUNCTION [None]
  - INCORRECT DOSE ADMINISTERED [None]
